FAERS Safety Report 21534436 (Version 1)
Quarter: 2022Q4

REPORT INFORMATION
  Report Type: Spontaneous
  Country: NL (occurrence: NL)
  Receive Date: 20221101
  Receipt Date: 20221101
  Transmission Date: 20230113
  Serious: Yes (Hospitalization)
  Sender: FDA-Public Use
  Company Number: None

PATIENT
  Sex: Female
  Weight: 91.5 kg

DRUGS (10)
  1. EMGALITY [Suspect]
     Active Substance: GALCANEZUMAB-GNLM
     Indication: Migraine
     Dosage: 1 DOSAGE FORM, MONTHLY (1/M)
     Route: 065
     Dates: start: 20211210
  2. LYNESTRENOL [Concomitant]
     Active Substance: LYNESTRENOL
     Indication: Product used for unknown indication
     Dosage: TABLET, 5 MG (MILLIGRAM)
  3. OMEPRAZOL CF [Concomitant]
     Indication: Product used for unknown indication
     Dosage: MAAGSAPRESISTENTE CAPSULE, 20 MG (MILLIGRAM)
  4. IBUPROFEN [Concomitant]
     Active Substance: IBUPROFEN
     Indication: Product used for unknown indication
     Dosage: TABLET 600 MG
  5. ATACAND [Concomitant]
     Active Substance: CANDESARTAN CILEXETIL
     Indication: Product used for unknown indication
     Dosage: TABLET, 16 MG (MILLIGRAM)
  6. CANDESARTAN [Concomitant]
     Active Substance: CANDESARTAN
     Indication: Product used for unknown indication
     Dosage: 8 MG
  7. SUMATRIPTAN [Concomitant]
     Active Substance: SUMATRIPTAN
     Indication: Product used for unknown indication
     Dosage: 6MG /1/2 ML
  8. FRAGMIN [Concomitant]
     Active Substance: DALTEPARIN SODIUM
     Indication: Product used for unknown indication
     Dosage: 50000 IE PER 2 ML
  9. ACETAMINOPHEN [Concomitant]
     Active Substance: ACETAMINOPHEN
     Indication: Product used for unknown indication
     Dosage: TABLET, 1000 MG (MILLIGRAM)
  10. RIZATRIPTAN [Concomitant]
     Active Substance: RIZATRIPTAN
     Indication: Product used for unknown indication
     Dosage: SMELTTABLET, 10 MG (MILLIGRAM)

REACTIONS (4)
  - Lower limb fracture [Not Recovered/Not Resolved]
  - Impaired healing [Not Recovered/Not Resolved]
  - Wound complication [Not Recovered/Not Resolved]
  - Fracture pain [Not Recovered/Not Resolved]
